FAERS Safety Report 4816509-2 (Version None)
Quarter: 2005Q4

REPORT INFORMATION
  Report Type: 
  Country: None (occurrence: None)
  Receive Date: 20051101
  Receipt Date: 20051025
  Transmission Date: 20060501
  Serious: Yes (Death, Hospitalization)
  Sender: FDA-Public Use
  Company Number: PHRM2005FR02868

PATIENT
  Age: 63 Year
  Sex: Male

DRUGS (3)
  1. EBIXA [Concomitant]
     Route: 048
  2. EXELON [Suspect]
     Indication: DEMENTIA ALZHEIMER'S TYPE
     Dosage: 6 MG + 4.5 MG, DAILY
     Route: 048
  3. EXELON [Suspect]
     Dosage: 2X6 MG, DAILY
     Route: 048

REACTIONS (5)
  - ABNORMAL BEHAVIOUR [None]
  - AGGRESSION [None]
  - CEREBROVASCULAR ACCIDENT [None]
  - CHOKING [None]
  - NEGATIVISM [None]
